FAERS Safety Report 5956814-X (Version None)
Quarter: 2008Q4

REPORT INFORMATION
  Report Type: 
  Country: None (occurrence: None)
  Receive Date: 20081114
  Receipt Date: 20081114
  Transmission Date: 20090506
  Serious: Yes (Other)
  Sender: FDA-Public Use
  Company Number: None

PATIENT
  Age: 66 Year
  Sex: Male
  Weight: 79.3795 kg

DRUGS (1)
  1. BYSTOLIC [Suspect]
     Indication: ESSENTIAL HYPERTENSION
     Dosage: 5MG  1X DAY PO
     Route: 048
     Dates: start: 20081030, end: 20081113

REACTIONS (2)
  - MUSCULOSKELETAL PAIN [None]
  - PAIN IN EXTREMITY [None]
